FAERS Safety Report 9934818 (Version 1)
Quarter: 2014Q1

REPORT INFORMATION
  Report Type: Spontaneous
  Country: JP (occurrence: JP)
  Receive Date: 20140228
  Receipt Date: 20140228
  Transmission Date: 20141002
  Serious: Yes (Other)
  Sender: FDA-Public Use
  Company Number: JP-GLAXOSMITHKLINE-B0972795A

PATIENT
  Age: 57 Year
  Sex: Female

DRUGS (4)
  1. LAMICTAL [Suspect]
     Indication: BIPOLAR DISORDER
     Dosage: 25MG ALTERNATE DAYS
     Route: 048
     Dates: start: 20140204, end: 20140217
  2. AMOXAN [Concomitant]
     Route: 048
  3. ABILIFY [Concomitant]
     Dosage: 1.5MG PER DAY
     Route: 048
  4. WYPAX [Concomitant]
     Route: 048

REACTIONS (4)
  - Rash generalised [Unknown]
  - Conjunctival hyperaemia [Unknown]
  - Hyperaemia [Unknown]
  - Rash [Unknown]
